FAERS Safety Report 6520284-3 (Version None)
Quarter: 2009Q4

REPORT INFORMATION
  Report Type: 
  Country: None (occurrence: None)
  Receive Date: 20091229
  Receipt Date: 20091216
  Transmission Date: 20100525
  Serious: Yes (Hospitalization, Other)
  Sender: FDA-Public Use
  Company Number: PHEH2009US17918

PATIENT
  Sex: Female

DRUGS (3)
  1. COMTAN [Suspect]
     Dosage: 200 MG, TID
     Dates: start: 19990101
  2. CARBIDOPA AND LEVODOPA [Concomitant]
  3. THYROID TAB [Concomitant]

REACTIONS (2)
  - NEPHROLITHIASIS [None]
  - SOMNOLENCE [None]
